FAERS Safety Report 26182729 (Version 1)
Quarter: 2025Q4

REPORT INFORMATION
  Report Type: Spontaneous
  Country: US (occurrence: US)
  Receive Date: 20251221
  Receipt Date: 20251221
  Transmission Date: 20260118
  Serious: Yes (Death)
  Sender: MERCK SHARP & DOHME LLC
  Company Number: US-009507513-2362720

PATIENT
  Age: 82 Year
  Sex: Male

DRUGS (2)
  1. KEYTRUDA [Suspect]
     Active Substance: PEMBROLIZUMAB
  2. UNSPECIFIED INGREDIENT [Suspect]
     Active Substance: UNSPECIFIED INGREDIENT

REACTIONS (1)
  - Death [Fatal]

NARRATIVE: CASE EVENT DATE: 20251024
